FAERS Safety Report 9696211 (Version 1)
Quarter: 2013Q4

REPORT INFORMATION
  Report Type: Report from Study
  Country: CA (occurrence: CA)
  Receive Date: 20131119
  Receipt Date: 20131119
  Transmission Date: 20140711
  Serious: Yes (Other)
  Sender: FDA-Public Use
  Company Number: PHHY2013CA132095

PATIENT
  Age: 37 Year
  Sex: Male

DRUGS (1)
  1. CLOZARIL [Suspect]
     Indication: SCHIZOPHRENIA
     Dosage: UNK UKN, UNK
     Route: 048
     Dates: start: 20000929

REACTIONS (2)
  - QRS axis abnormal [Unknown]
  - Electrocardiogram QT prolonged [Unknown]
